FAERS Safety Report 16498590 (Version 4)
Quarter: 2023Q2

REPORT INFORMATION
  Report Type: Report from Study
  Country: AU (occurrence: AU)
  Receive Date: 20190629
  Receipt Date: 20230428
  Transmission Date: 20230721
  Serious: Yes (Hospitalization)
  Sender: FDA-Public Use
  Company Number: PHHO2019AU006134

PATIENT
  Age: 77 Year
  Sex: Female
  Weight: 45.5 kg

DRUGS (5)
  1. PIQRAY [Suspect]
     Active Substance: ALPELISIB
     Indication: Breast cancer
     Dosage: 350 MG
     Route: 048
     Dates: start: 20190529, end: 20190605
  2. PIQRAY [Suspect]
     Active Substance: ALPELISIB
     Dosage: 300 MG
     Route: 048
     Dates: start: 20190627, end: 20190710
  3. DENOSUMAB [Concomitant]
     Active Substance: DENOSUMAB
     Indication: Prophylaxis
     Dosage: 120 MG QMO, MONTHLY 2ND MONTHLY SC
     Route: 058
     Dates: start: 20161102
  4. ENOXAPARIN SODIUM [Concomitant]
     Active Substance: ENOXAPARIN SODIUM
     Indication: Deep vein thrombosis
     Dosage: 60 MG, QD
     Route: 058
     Dates: start: 20181029, end: 20190605
  5. VITAMIN D [Concomitant]
     Active Substance: VITAMIN D NOS
     Indication: Vitamin D deficiency
     Dosage: 1 DF, QD
     Route: 048
     Dates: start: 20190611

REACTIONS (3)
  - Sepsis [Recovered/Resolved]
  - Confusional state [Recovering/Resolving]
  - Pyrexia [Recovered/Resolved]

NARRATIVE: CASE EVENT DATE: 20190606
